FAERS Safety Report 8864940 (Version 1)
Quarter: 2012Q4

REPORT INFORMATION
  Report Type: 
  Country: US (occurrence: US)
  Receive Date: 20121024
  Receipt Date: 20121024
  Transmission Date: 20130627
  Serious: No
  Sender: FDA-Public Use
  Company Number: US-AMGEN-USASP2012000336

PATIENT
  Age: 57 Year
  Sex: Male
  Weight: 92.97 kg

DRUGS (9)
  1. ENBREL [Suspect]
     Indication: PRODUCT USED FOR UNKNOWN INDICATION
     Dosage: 50 mg, 2 times/wk
  2. LISINOPRIL [Concomitant]
     Dosage: 5 mg, UNK
  3. ONE DAILY                          /01824901/ [Concomitant]
     Dosage: UNK
  4. VITAMIN B12                        /00056201/ [Concomitant]
     Dosage: UNK
  5. VITAMIN D /00107901/ [Concomitant]
     Dosage: UNK
  6. CO Q 10 [Concomitant]
     Dosage: 10 mg, UNK
  7. PROTOPIC [Concomitant]
     Dosage: .03 %, UNK
  8. METROGEL [Concomitant]
     Dosage: 1 %, UNK
  9. CLOBETASOL [Concomitant]
     Dosage: .05 %, UNK

REACTIONS (1)
  - Pyrexia [Unknown]
